FAERS Safety Report 6309142-7 (Version None)
Quarter: 2009Q3

REPORT INFORMATION
  Report Type: 
  Country: None (occurrence: None)
  Receive Date: 20090814
  Receipt Date: 20090427
  Transmission Date: 20100115
  Serious: No
  Sender: FDA-Public Use
  Company Number: A0780768A

PATIENT
  Age: 76 Year
  Sex: Female

DRUGS (7)
  1. COREG CR [Suspect]
     Indication: HYPERTENSION
     Dosage: 20MG PER DAY
     Route: 048
     Dates: start: 20090413
  2. BENEFIBER [Concomitant]
  3. PROTONIX [Concomitant]
  4. ASPIRIN [Concomitant]
  5. M.V.I. [Concomitant]
  6. UNKNOWN MEDICATION [Concomitant]
  7. CRESTOR [Concomitant]

REACTIONS (1)
  - CONSTIPATION [None]
